FAERS Safety Report 18747355 (Version 3)
Quarter: 2021Q1

REPORT INFORMATION
  Report Type: Report from Study
  Country: US (occurrence: US)
  Receive Date: 20210115
  Receipt Date: 20210316
  Transmission Date: 20210419
  Serious: Yes (Other)
  Sender: FDA-Public Use
  Company Number: US-BAYER-2020-264420

PATIENT
  Age: 76 Year
  Sex: Male

DRUGS (4)
  1. STIVARGA [Suspect]
     Active Substance: REGORAFENIB
     Indication: COLORECTAL CANCER
     Dosage: 40 MG, BID FOR 21 DAYS THEN OFF FOR 7 DAYS
     Route: 048
     Dates: start: 20201129, end: 20201201
  2. STIVARGA [Suspect]
     Active Substance: REGORAFENIB
     Indication: COLORECTAL CANCER
     Dosage: DAILY DOSE 120 MG
     Route: 048
     Dates: start: 20210209
  3. PREDNISONE. [Concomitant]
     Active Substance: PREDNISONE
     Indication: FATIGUE
  4. STIVARGA [Suspect]
     Active Substance: REGORAFENIB
     Indication: HEPATIC CANCER
     Dosage: DAILY DOSE 80 MG FOR 21 DAYS OF A 28 DAY CYCLE
     Route: 048
     Dates: start: 20201202

REACTIONS (8)
  - Neuropathy peripheral [Not Recovered/Not Resolved]
  - Product dose omission issue [None]
  - Pre-existing condition improved [Recovering/Resolving]
  - Scab [Recovered/Resolved]
  - Off label use [None]
  - Fatigue [Recovered/Resolved]
  - Dry skin [None]
  - Dysphonia [Recovering/Resolving]

NARRATIVE: CASE EVENT DATE: 202011
